FAERS Safety Report 18101282 (Version 1)
Quarter: 2020Q3

REPORT INFORMATION
  Report Type: Spontaneous
  Country: US (occurrence: US)
  Receive Date: 20200801
  Receipt Date: 20200801
  Transmission Date: 20201103
  Serious: Yes (Other)
  Sender: FDA-Public Use
  Company Number: US-009507513-2007USA011842

PATIENT
  Age: 18 Year
  Sex: Male

DRUGS (4)
  1. PROPECIA [Suspect]
     Active Substance: FINASTERIDE
     Dosage: 1.2 MG/ONCE DAILY
     Route: 048
  2. PROPECIA [Suspect]
     Active Substance: FINASTERIDE
     Indication: ALOPECIA
     Dosage: 1 MG/ONCE DAILY
     Route: 048
     Dates: start: 20170215
  3. PROPECIA [Suspect]
     Active Substance: FINASTERIDE
     Dosage: 1 MG/ONCE DAILY
     Route: 048
  4. PROPECIA [Suspect]
     Active Substance: FINASTERIDE
     Dosage: 0.5 MG/ONCE DAILY
     Route: 048

REACTIONS (2)
  - Libido decreased [Not Recovered/Not Resolved]
  - Sexual dysfunction [Not Recovered/Not Resolved]

NARRATIVE: CASE EVENT DATE: 201702
